FAERS Safety Report 4474545-2 (Version None)
Quarter: 2004Q4

REPORT INFORMATION
  Report Type: 
  Country: None (occurrence: None)
  Receive Date: 20041008
  Receipt Date: 20041001
  Transmission Date: 20050328
  Serious: Yes (Hospitalization, Other)
  Sender: FDA-Public Use
  Company Number: KII-2004-0013510

PATIENT
  Age: 51 Year
  Sex: Female

DRUGS (6)
  1. OXYCODONE HCL [Suspect]
     Dosage: ORAL
     Route: 048
  2. AMITRIPTYLINE HCL [Suspect]
     Dosage: ORAL
     Route: 048
  3. HYDROCODONE (HYDROCODONE) [Suspect]
     Dosage: ORAL
     Route: 048
  4. BENZODIAZEPINES DERIVATIVES () [Suspect]
     Dosage: ORAL
     Route: 048
  5. ETHANOL (ETHANOL) [Suspect]
     Dosage: ORAL
     Route: 048
  6. ACETAMINOPHEN [Suspect]

REACTIONS (5)
  - BLOOD PRESSURE INCREASED [None]
  - COMA [None]
  - HEART RATE INCREASED [None]
  - LETHARGY [None]
  - MULTIPLE DRUG OVERDOSE [None]
